FAERS Safety Report 11127891 (Version 1)
Quarter: 2015Q2

REPORT INFORMATION
  Report Type: Spontaneous
  Country: US (occurrence: US)
  Receive Date: 20150521
  Receipt Date: 20150521
  Transmission Date: 20150821
  Serious: Yes (Hospitalization)
  Sender: FDA-Public Use
  Company Number: US-ACORDA-ACO_111610_2015

PATIENT
  Sex: Male

DRUGS (1)
  1. AMPYRA [Suspect]
     Active Substance: DALFAMPRIDINE
     Indication: PRODUCT USED FOR UNKNOWN INDICATION
     Dosage: 10 MG, Q 12 HRS
     Route: 065
     Dates: start: 201301, end: 2015

REACTIONS (10)
  - Confusional state [Unknown]
  - Depression [Unknown]
  - Decreased appetite [Unknown]
  - Fall [Unknown]
  - Gait disturbance [Unknown]
  - Bipolar disorder [Unknown]
  - Anger [Unknown]
  - Thinking abnormal [Unknown]
  - Weight decreased [Unknown]
  - Hypoaesthesia [Unknown]
